FAERS Safety Report 12369749 (Version 2)
Quarter: 2016Q2

REPORT INFORMATION
  Report Type: Spontaneous
  Country: US (occurrence: US)
  Receive Date: 20160516
  Receipt Date: 20160629
  Transmission Date: 20160815
  Serious: Yes (Disabling)
  Sender: FDA-Public Use
  Company Number: US-009507513-1605USA006464

PATIENT
  Age: 76 Year
  Sex: Female
  Weight: 68.27 kg

DRUGS (1)
  1. JANUVIA [Suspect]
     Active Substance: SITAGLIPTIN PHOSPHATE
     Indication: DIABETES MELLITUS
     Dosage: 30 DOSAGE FORM, ONCE DAILY TAKEN BY MOUTH
     Route: 048
     Dates: end: 20150720

REACTIONS (4)
  - Cough [Unknown]
  - Sputum discoloured [Unknown]
  - Dyspnoea [Unknown]
  - Upper respiratory tract infection [Unknown]

NARRATIVE: CASE EVENT DATE: 20150710
